FAERS Safety Report 6348332-4 (Version None)
Quarter: 2009Q3

REPORT INFORMATION
  Report Type: 
  Country: None (occurrence: None)
  Receive Date: 20090908
  Receipt Date: 20090820
  Transmission Date: 20100115
  Serious: Yes (Death, Hospitalization)
  Sender: FDA-Public Use
  Company Number: 2009AL003728

PATIENT
  Age: 49 Year
  Sex: Male

DRUGS (23)
  1. DIGOXIN [Suspect]
     Dosage: 0.25MG, PO
     Route: 048
     Dates: start: 20030501
  2. FUROSEMIDE [Concomitant]
  3. CEPHALEXIN [Concomitant]
  4. HYDROCODONE [Concomitant]
  5. ALTACE [Concomitant]
  6. KLOR-CON [Concomitant]
  7. HYDROCHLOROTHIAZIDE [Concomitant]
  8. ASCENSIA [Concomitant]
  9. COREG [Concomitant]
  10. LUNESTA [Concomitant]
  11. POTASSIUM CHLORIDE [Concomitant]
  12. RAMIPRIL [Concomitant]
  13. CARVEDILOL [Concomitant]
  14. ENOXAPARIN [Concomitant]
  15. ASPIRIN [Concomitant]
  16. VASOTEC [Concomitant]
  17. INSULIN [Concomitant]
  18. ZOLPIDEM [Concomitant]
  19. INSPIRA [Concomitant]
  20. SPIRONOLACTONE [Concomitant]
  21. EPIERODONE [Concomitant]
  22. MICRO-K [Concomitant]
  23. NESIRITIDE [Concomitant]

REACTIONS (11)
  - ACUTE CORONARY SYNDROME [None]
  - ASTHENIA [None]
  - CARDIAC ARREST [None]
  - CARDIAC FAILURE [None]
  - CARDIOMYOPATHY [None]
  - DYSPNOEA [None]
  - ELECTROMECHANICAL DISSOCIATION [None]
  - FEELING ABNORMAL [None]
  - SWELLING [None]
  - VENTRICULAR TACHYCARDIA [None]
  - WEIGHT INCREASED [None]
